FAERS Safety Report 17885512 (Version 1)
Quarter: 2020Q2

REPORT INFORMATION
  Report Type: Spontaneous
  Country: US (occurrence: US)
  Receive Date: 20200611
  Receipt Date: 20200611
  Transmission Date: 20200714
  Serious: No
  Sender: FDA-Public Use
  Company Number: US-APOTEX-2020AP007640

PATIENT
  Sex: Female

DRUGS (1)
  1. METFORMIN [Suspect]
     Active Substance: METFORMIN HYDROCHLORIDE
     Indication: PRODUCT USED FOR UNKNOWN INDICATION
     Dosage: 1000 MG, BID
     Route: 065

REACTIONS (6)
  - Ingrowing nail [Unknown]
  - Peripheral swelling [Unknown]
  - Pain in extremity [Unknown]
  - Abdominal pain upper [Unknown]
  - Joint swelling [Unknown]
  - Diarrhoea [Unknown]

NARRATIVE: CASE EVENT DATE: 2019
